FAERS Safety Report 7862883-2 (Version None)
Quarter: 2011Q4

REPORT INFORMATION
  Report Type: 
  Country: None (occurrence: None)
  Receive Date: 20111027
  Receipt Date: 20101116
  Transmission Date: 20120403
  Serious: No
  Sender: FDA-Public Use
  Company Number: US-AMGEN-USASP2010005100

PATIENT
  Sex: Female

DRUGS (1)
  1. ENBREL [Suspect]
     Indication: PSORIASIS
     Dosage: UNK
     Dates: start: 20070101, end: 20090601

REACTIONS (7)
  - INJECTION SITE PAIN [None]
  - INJECTION SITE HAEMATOMA [None]
  - BRONCHITIS [None]
  - PRODUCTIVE COUGH [None]
  - PSORIASIS [None]
  - BURNING SENSATION [None]
  - INJECTION SITE HAEMORRHAGE [None]
